FAERS Safety Report 7202042-X (Version None)
Quarter: 2010Q4

REPORT INFORMATION
  Report Type: 
  Country: None (occurrence: None)
  Receive Date: 20101229
  Receipt Date: 20101221
  Transmission Date: 20110411
  Serious: Yes (Other)
  Sender: FDA-Public Use
  Company Number: PT-ASTRAZENECA-2010SE60801

PATIENT
  Age: 540 Month
  Sex: Female

DRUGS (1)
  1. HYTACAND [Suspect]
     Route: 048
     Dates: start: 20080201

REACTIONS (5)
  - DIARRHOEA [None]
  - FACE OEDEMA [None]
  - NAUSEA [None]
  - URTICARIA [None]
  - VOMITING [None]
